FAERS Safety Report 4472108-6 (Version None)
Quarter: 2004Q4

REPORT INFORMATION
  Report Type: 
  Country: None (occurrence: None)
  Receive Date: 20041008
  Receipt Date: 20040927
  Transmission Date: 20050328
  Serious: Yes (Other)
  Sender: FDA-Public Use
  Company Number: 2004047279

PATIENT
  Age: 57 Year
  Sex: Male

DRUGS (2)
  1. VIAGRA [Suspect]
     Indication: ILL-DEFINED DISORDER
  2. WARFARIN (WARFARIN) [Concomitant]

REACTIONS (1)
  - ARTERIAL THROMBOSIS LIMB [None]
